FAERS Safety Report 4714633-6 (Version None)
Quarter: 2005Q3

REPORT INFORMATION
  Report Type: 
  Country: None (occurrence: None)
  Receive Date: 20050714
  Receipt Date: 20050702
  Transmission Date: 20060218
  Serious: Yes (Other)
  Sender: FDA-Public Use
  Company Number: 2005095485

PATIENT
  Age: 39 Year
  Sex: Female
  Weight: 54.4316 kg

DRUGS (5)
  1. DRAMAMINE LESS DROWSY FORMULA (MECLIZINE) [Suspect]
     Indication: INTENTIONAL MISUSE
     Dosage: 5 PILLS, ONCE, ORAL
     Route: 048
     Dates: start: 20050702, end: 20050702
  2. DRAMAMINE LESS DROWSY FORMULA (MECLIZINE) [Suspect]
     Indication: OVERDOSE
     Dosage: 5 PILLS, ONCE, ORAL
     Route: 048
     Dates: start: 20050702, end: 20050702
  3. DRUG, UNSPECIFIED (DRUG, UNSPECIFIED) [Concomitant]
  4. ANTIDEPRESSANTS (ANTIDEPRESSANTS) [Concomitant]
  5. VITAMINS NOS (VITAMINS NOS) [Concomitant]

REACTIONS (4)
  - INTENTIONAL MISUSE [None]
  - MALAISE [None]
  - OVERDOSE [None]
  - SOMNOLENCE [None]
